FAERS Safety Report 21938500 (Version 1)
Quarter: 2023Q1

REPORT INFORMATION
  Report Type: Spontaneous
  Country: US (occurrence: US)
  Receive Date: 20230201
  Receipt Date: 20230201
  Transmission Date: 20230417
  Serious: Yes (Other)
  Sender: FDA-Public Use
  Company Number: US-BAUSCH-BL-2023-001326

PATIENT

DRUGS (1)
  1. APRISO [Suspect]
     Active Substance: MESALAMINE
     Indication: Product used for unknown indication
     Dosage: THREE DAYS IN A ROW
     Route: 065

REACTIONS (6)
  - Delirium [Unknown]
  - Chills [Recovered/Resolved]
  - Dysstasia [Unknown]
  - Memory impairment [Unknown]
  - Confusional state [Unknown]
  - Pyrexia [Unknown]
